FAERS Safety Report 11319452 (Version 1)
Quarter: 2015Q3

REPORT INFORMATION
  Report Type: Spontaneous
  Country: IN (occurrence: IN)
  Receive Date: 20150729
  Receipt Date: 20150729
  Transmission Date: 20151125
  Serious: Yes (Death, Hospitalization)
  Sender: FDA-Public Use
  Company Number: IN-AUROBINDO-AUR-APL-2015-06367

PATIENT
  Age: 26 Year
  Sex: Female

DRUGS (8)
  1. PARACETAMOL [Concomitant]
     Active Substance: ACETAMINOPHEN
     Indication: ANTIPYRESIS
     Dosage: 500 MG, 3 TIMES A DAY
     Route: 048
  2. CEFTRIAXONE. [Concomitant]
     Active Substance: CEFTRIAXONE
     Indication: ANTIBIOTIC THERAPY
     Dosage: 1 G, TWO TIMES A DAY
     Route: 042
  3. NEVIRAPINE. [Suspect]
     Active Substance: NEVIRAPINE
     Indication: HIV INFECTION
     Route: 065
  4. PANTOPRAZOLE                       /01263204/ [Concomitant]
     Active Substance: PANTOPRAZOLE SODIUM
     Indication: GASTRIC ULCER
     Dosage: 40 MG, TWO TIMES A DAY
     Route: 042
  5. ZIDOVUDINE. [Suspect]
     Active Substance: ZIDOVUDINE
     Indication: HIV INFECTION
     Dosage: UNK
     Route: 065
  6. LAMIVUDINE. [Suspect]
     Active Substance: LAMIVUDINE
     Indication: HIV INFECTION
     Dosage: UNK
     Route: 065
  7. ONDANSETRAN [Concomitant]
     Active Substance: ONDANSETRON HYDROCHLORIDE
     Indication: ANTIEMETIC SUPPORTIVE CARE
     Dosage: 4 MG, TWO TIMES A DAY
     Route: 042
  8. SUCRALFATE. [Concomitant]
     Active Substance: SUCRALFATE
     Indication: MUCOSAL ULCERATION
     Dosage: 1 G, 3 TIMES A DAY
     Route: 048

REACTIONS (14)
  - Hepatomegaly [Unknown]
  - Liver function test abnormal [Unknown]
  - Asthenia [Unknown]
  - Decreased appetite [Unknown]
  - Splenomegaly [Unknown]
  - Abdominal pain [Unknown]
  - Anaemia [Fatal]
  - Pyrexia [Unknown]
  - Pallor [Unknown]
  - Cough [Unknown]
  - Vomiting [Unknown]
  - Gastritis [Fatal]
  - Dyspepsia [Unknown]
  - Abdominal pain upper [Unknown]
